FAERS Safety Report 4963382-8 (Version None)
Quarter: 2006Q1

REPORT INFORMATION
  Report Type: 
  Country: None (occurrence: None)
  Receive Date: 20060329
  Receipt Date: 20060319
  Transmission Date: 20060701
  Serious: Yes (Death)
  Sender: FDA-Public Use
  Company Number: 2006S1000059

PATIENT
  Sex: 0

DRUGS (1)
  1. CUBICIN [Suspect]
     Dosage: UNKNOWN
     Route: 065

REACTIONS (1)
  - DEATH [None]
